FAERS Safety Report 7149015-3 (Version None)
Quarter: 2010Q4

REPORT INFORMATION
  Report Type: 
  Country: None (occurrence: None)
  Receive Date: 20101209
  Receipt Date: 20101202
  Transmission Date: 20110411
  Serious: No
  Sender: FDA-Public Use
  Company Number: US-TEVA-258717USA

PATIENT
  Sex: Female
  Weight: 70.37 kg

DRUGS (2)
  1. ALBUTEROL SULFATE AUTOHALER [Suspect]
     Indication: ASTHMA
     Route: 055
     Dates: start: 20101202, end: 20101202
  2. LORAZEPAM [Concomitant]

REACTIONS (1)
  - PRURITUS [None]
